FAERS Safety Report 14217526 (Version 8)
Quarter: 2018Q3

REPORT INFORMATION
  Report Type: Spontaneous
  Country: JP (occurrence: JP)
  Receive Date: 20171123
  Receipt Date: 20180809
  Transmission Date: 20181010
  Serious: Yes (Life-Threatening, Hospitalization, Other)
  Sender: FDA-Public Use
  Company Number: JP-BRISTOL-MYERS SQUIBB COMPANY-BMS-2017-104619

PATIENT
  Age: 65 Year
  Sex: Female
  Weight: 44.3 kg

DRUGS (4)
  1. NIVOLUMAB [Suspect]
     Active Substance: NIVOLUMAB
     Indication: MALIGNANT MELANOMA
     Dosage: UNK
     Route: 065
  2. YERVOY [Suspect]
     Active Substance: IPILIMUMAB
     Indication: MALIGNANT MELANOMA
     Dosage: 144 MG, UNK
     Route: 041
     Dates: start: 20170929, end: 20171020
  3. PARSABIV [Suspect]
     Active Substance: ETELCALCETIDE HYDROCHLORIDE
     Indication: MALIGNANT MELANOMA
     Dosage: 2 MG/KG, UNK
     Route: 041
  4. PEMBROLIZUMAB. [Suspect]
     Active Substance: PEMBROLIZUMAB
     Indication: MALIGNANT MELANOMA
     Dosage: UNK
     Route: 065
     Dates: start: 201704, end: 201709

REACTIONS (7)
  - Seizure [Recovered/Resolved]
  - Altered state of consciousness [Unknown]
  - Malaise [Unknown]
  - Decreased appetite [Unknown]
  - Fulminant type 1 diabetes mellitus [Recovering/Resolving]
  - Vomiting [Unknown]
  - Diarrhoea [Unknown]

NARRATIVE: CASE EVENT DATE: 20171114
